FAERS Safety Report 8425263-7 (Version None)
Quarter: 2012Q2

REPORT INFORMATION
  Report Type: 
  Country: None (occurrence: None)
  Receive Date: 20120605
  Receipt Date: 20120605
  Transmission Date: 20120825
  Serious: Yes (Disabling)
  Sender: FDA-Public Use
  Company Number: None

PATIENT
  Sex: Female
  Weight: 63.5036 kg

DRUGS (1)
  1. SYNVISC [Suspect]
     Indication: MUSCULOSKELETAL DISORDER
     Dosage: 6 SHOTS IN KNEES ONCE A WEEK IN KNEE FROM CAREMORE  DR. SWANSON 3 OR 4 YEARS AGO

REACTIONS (1)
  - DRUG EFFECT DECREASED [None]
